FAERS Safety Report 7753144-0 (Version None)
Quarter: 2011Q3

REPORT INFORMATION
  Report Type: 
  Country: None (occurrence: None)
  Receive Date: 20110915
  Receipt Date: 20110906
  Transmission Date: 20111222
  Serious: Yes (Hospitalization)
  Sender: FDA-Public Use
  Company Number: TW-PFIZER INC-2011209833

PATIENT
  Age: 47 Year
  Sex: Female
  Weight: 36 kg

DRUGS (23)
  1. FLUOROURACIL [Suspect]
     Indication: COLORECTAL CANCER METASTATIC
     Dosage: 400 MG/M2, DAY 1 EVERY 14 DAYS
     Route: 040
     Dates: start: 20110608, end: 20110725
  2. ACETAMINOPHEN [Concomitant]
     Indication: ALLERGY PROPHYLAXIS
  3. GRAMICIDIN [Concomitant]
  4. IRINOTECAN HCL [Suspect]
     Indication: COLORECTAL CANCER METASTATIC
     Dosage: 180 MG/M2, DAY 1 EVERY 14 DAYS
     Route: 042
     Dates: start: 20110608, end: 20110725
  5. SINOMIN [Concomitant]
  6. TRAMADOL [Concomitant]
  7. NYSTATIN [Concomitant]
     Indication: DRY THROAT
  8. FLUOROURACIL [Suspect]
     Dosage: 2400 MG/M2, CYCLIC, ON DAYS 1 AND 2 EVERY 14 DAYS
     Route: 042
     Dates: start: 20110608, end: 20110725
  9. PARACETAMOL [Concomitant]
     Indication: ALLERGY PROPHYLAXIS
  10. DURATEARS [Concomitant]
  11. PYRIDOXINE HYDROCHLORIDE [Concomitant]
     Dosage: UNK
     Dates: start: 20110804, end: 20110804
  12. VITAMIN B COMPLEX CAP [Concomitant]
     Indication: SUPPLEMENTATION THERAPY
  13. ASCORBIC ACID [Concomitant]
     Indication: SUPPLEMENTATION THERAPY
  14. LEVOCETIRIZINE [Concomitant]
     Indication: RHINITIS ALLERGIC
     Dosage: UNK
     Dates: start: 20110804, end: 20110804
  15. TRIAMCINOLONE [Concomitant]
     Indication: ALLERGY PROPHYLAXIS
  16. BLINDED THERAPY [Suspect]
     Indication: COLORECTAL CANCER METASTATIC
     Dosage: UNK
     Dates: start: 20110608, end: 20110725
  17. TRIAMCINOLONE ACETONIDE [Concomitant]
  18. DICLOFENAC SODIUM [Concomitant]
     Indication: ALLERGY PROPHYLAXIS
     Dosage: UNK
     Dates: start: 20110804, end: 20110804
  19. NEOMYCIN SULFATE [Concomitant]
  20. CEFUROXIME [Concomitant]
     Indication: ANTIBIOTIC PROPHYLAXIS
     Dosage: UNK
     Dates: start: 20110801, end: 20110807
  21. COUGH MIXTURE A [Concomitant]
     Indication: DRY THROAT
  22. LEUCOVORIN CALCIUM [Suspect]
     Indication: COLORECTAL CANCER METASTATIC
     Dosage: 400 MG/M2, CYCLIC, DAY 1 EVERY 14 DAYS
     Route: 042
     Dates: start: 20110608, end: 20110725
  23. ALPRAZOLAM [Concomitant]
     Indication: INSOMNIA
     Dosage: UNK
     Dates: start: 20110804, end: 20110804

REACTIONS (12)
  - PHOTOPHOBIA [None]
  - EYE PAIN [None]
  - EAR PAIN [None]
  - RHINALGIA [None]
  - DYSPHONIA [None]
  - VISION BLURRED [None]
  - EPISTAXIS [None]
  - PYREXIA [None]
  - DIPLOPIA [None]
  - LOOSE TOOTH [None]
  - DRY THROAT [None]
  - OROPHARYNGEAL PAIN [None]
